FAERS Safety Report 8031749-X (Version None)
Quarter: 2012Q1

REPORT INFORMATION
  Report Type: 
  Country: None (occurrence: None)
  Receive Date: 20120109
  Receipt Date: 20120105
  Transmission Date: 20120608
  Serious: No
  Sender: FDA-Public Use
  Company Number: US-BAYER-2012-002448

PATIENT
  Age: 37 Year
  Sex: Female
  Weight: 57 kg

DRUGS (1)
  1. ALEVE (CAPLET) [Suspect]
     Indication: PRODUCT USED FOR UNKNOWN INDICATION
     Dosage: 2 DF, Q2HR
     Route: 048
     Dates: start: 20120105

REACTIONS (1)
  - NO ADVERSE EVENT [None]
